FAERS Safety Report 9154189 (Version 2)
Quarter: 2013Q1

REPORT INFORMATION
  Report Type: Spontaneous
  Country: JP (occurrence: JP)
  Receive Date: 20130311
  Receipt Date: 20130328
  Transmission Date: 20140127
  Serious: Yes (Other)
  Sender: FDA-Public Use
  Company Number: JP-PFIZER INC-2013075535

PATIENT
  Age: 77 Year
  Sex: Male

DRUGS (3)
  1. TORISEL [Suspect]
     Dosage: 20 MG, WEEKLY
     Route: 041
     Dates: start: 20130301
  2. TORISEL [Suspect]
     Dosage: 10 MG, WEEKLY
     Route: 041
  3. CHLOR-TRIMETON [Concomitant]
     Indication: HYPERSENSITIVITY
     Dosage: UNK

REACTIONS (6)
  - Depressed level of consciousness [Recovered/Resolved]
  - Feeling cold [Recovered/Resolved]
  - Blood pressure increased [Recovered/Resolved]
  - Malaise [Recovered/Resolved]
  - Dizziness [Recovered/Resolved]
  - C-reactive protein increased [Unknown]
